FAERS Safety Report 18756309 (Version 1)
Quarter: 2021Q1

REPORT INFORMATION
  Report Type: Spontaneous
  Country: NL (occurrence: NL)
  Receive Date: 20210119
  Receipt Date: 20210119
  Transmission Date: 20210419
  Serious: Yes (Other)
  Sender: FDA-Public Use
  Company Number: NL-TEVA-2021-NL-1869325

PATIENT
  Sex: Male
  Weight: 63.7 kg

DRUGS (1)
  1. DOXAZOSINE TABLET MGA 4MG / BRAND NAME NOT SPECIFIED [Suspect]
     Active Substance: DOXAZOSIN MESYLATE
     Indication: HYPERTENSION
     Dosage: 4 MILLIGRAM DAILY; 1 PIECE
     Dates: start: 202006, end: 20201126

REACTIONS (2)
  - Toxic skin eruption [Recovering/Resolving]
  - Rash pruritic [Recovering/Resolving]
